FAERS Safety Report 11260578 (Version 1)
Quarter: 2015Q3

REPORT INFORMATION
  Report Type: Spontaneous
  Country: US (occurrence: US)
  Receive Date: 20150710
  Receipt Date: 20150710
  Transmission Date: 20151125
  Serious: No
  Sender: FDA-Public Use
  Company Number: US-TEVA-507394USA

PATIENT
  Age: 71 Year
  Sex: Male

DRUGS (1)
  1. SIMVASTATIN. [Suspect]
     Active Substance: SIMVASTATIN
     Indication: BLOOD CHOLESTEROL INCREASED
     Dosage: TAKING ON ALTERNATE DAYS

REACTIONS (3)
  - Inappropriate schedule of drug administration [Unknown]
  - Irritability [Unknown]
  - Aggression [Unknown]

NARRATIVE: CASE EVENT DATE: 201407
